FAERS Safety Report 21072054 (Version 2)
Quarter: 2022Q3

REPORT INFORMATION
  Report Type: Spontaneous
  Country: RU (occurrence: RU)
  Receive Date: 20220712
  Receipt Date: 20220719
  Transmission Date: 20221026
  Serious: Yes (Death)
  Sender: FDA-Public Use
  Company Number: RU-JNJFOC-20220708670

PATIENT
  Age: 31 Year
  Sex: Female
  Weight: 55 kg

DRUGS (12)
  1. UPTRAVI [Suspect]
     Active Substance: SELEXIPAG
     Indication: Pulmonary hypertension
     Route: 048
     Dates: start: 202205
  2. UPTRAVI [Suspect]
     Active Substance: SELEXIPAG
     Route: 048
     Dates: start: 20220527
  3. UPTRAVI [Suspect]
     Active Substance: SELEXIPAG
     Route: 048
     Dates: start: 202205
  4. OPSUMIT [Suspect]
     Active Substance: MACITENTAN
     Indication: Pulmonary hypertension
     Route: 048
     Dates: start: 201909, end: 202201
  5. SILDENAFIL [Suspect]
     Active Substance: SILDENAFIL
     Indication: Pulmonary hypertension
     Route: 065
  6. SILDENAFIL [Suspect]
     Active Substance: SILDENAFIL
     Dosage: 20 MG 0,5-1 TABLET 3 TIMES PER DAY
  7. TORSEMIDE [Concomitant]
     Active Substance: TORSEMIDE
     Indication: Polyuria
     Dosage: 10-20 MG
  8. SPIRONOLACTONE [Concomitant]
     Active Substance: SPIRONOLACTONE
  9. DIGOXIN [Concomitant]
     Active Substance: DIGOXIN
     Dosage: 0,00025 MG 0,5 OF THE TABLET
  10. ACETAZOLAMIDE [Concomitant]
     Active Substance: ACETAZOLAMIDE
     Dosage: 1 TABLET 3 TIMES PER DAY, 3 DAYS IN 2 WEEKS
  11. URSODIOL [Concomitant]
     Active Substance: URSODIOL
     Dosage: 2 TABLETS AT NIGHT
  12. NEXIUM [Concomitant]
     Active Substance: ESOMEPRAZOLE MAGNESIUM
     Dosage: IN THE MORNING

REACTIONS (2)
  - COVID-19 pneumonia [Fatal]
  - Cardiac failure chronic [Fatal]
